FAERS Safety Report 18435894 (Version 1)
Quarter: 2020Q4

REPORT INFORMATION
  Report Type: Spontaneous
  Country: US (occurrence: US)
  Receive Date: 20201028
  Receipt Date: 20201028
  Transmission Date: 20210114
  Serious: No
  Sender: FDA-Public Use
  Company Number: None

PATIENT
  Age: 75 Year
  Sex: Female
  Weight: 73.98 kg

DRUGS (11)
  1. ASEA [Concomitant]
  2. ONDANSETRON [Concomitant]
     Active Substance: ONDANSETRON
  3. VITAMIN D3 [Concomitant]
     Active Substance: CHOLECALCIFEROL
  4. CAPECITABINE. [Suspect]
     Active Substance: CAPECITABINE
     Indication: CHOLANGIOCARCINOMA
     Dosage: ?          OTHER FREQUENCY:BID FOR 14/28 DAYS;?
     Route: 048
     Dates: start: 20200521, end: 20201028
  5. CALCIUM [Concomitant]
     Active Substance: CALCIUM
  6. HYALURONIC ACID [Concomitant]
     Active Substance: HYALURONIC ACID
  7. MULTIVITAMIN [Concomitant]
     Active Substance: VITAMINS
  8. OMEGA 3 [Concomitant]
     Active Substance: OMEGA-3 FATTY ACIDS
  9. CAPECITABINE. [Suspect]
     Active Substance: CAPECITABINE
     Indication: CHOLANGIOCARCINOMA
     Dosage: ?          OTHER FREQUENCY:BID 14/28 DAYS;?
     Route: 048
     Dates: start: 20200521, end: 20201028
  10. OPC-3 [Concomitant]
  11. TURMERIC [Concomitant]
     Active Substance: HERBALS\TURMERIC

REACTIONS (1)
  - Disease progression [None]

NARRATIVE: CASE EVENT DATE: 20201028
